FAERS Safety Report 8448926-6 (Version None)
Quarter: 2012Q2

REPORT INFORMATION
  Report Type: 
  Country: None (occurrence: None)
  Receive Date: 20120613
  Receipt Date: 20120601
  Transmission Date: 20120825
  Serious: Yes (Hospitalization, Other)
  Sender: FDA-Public Use
  Company Number: 2012MA006851

PATIENT
  Age: 70 Year
  Sex: Female

DRUGS (1)
  1. DILTIAZEM HCL [Suspect]

REACTIONS (7)
  - ANURIA [None]
  - HYPOXIA [None]
  - METABOLIC ACIDOSIS [None]
  - SHOCK [None]
  - OVERDOSE [None]
  - LACTIC ACIDOSIS [None]
  - HYPOGLYCAEMIA [None]
